FAERS Safety Report 21256613 (Version 6)
Quarter: 2023Q1

REPORT INFORMATION
  Report Type: Spontaneous
  Country: PE (occurrence: PE)
  Receive Date: 20220826
  Receipt Date: 20230325
  Transmission Date: 20230418
  Serious: Yes (Other)
  Sender: FDA-Public Use
  Company Number: PE-PFIZER INC-PV202200046833

PATIENT
  Age: 54 Year
  Sex: Female

DRUGS (7)
  1. ENBREL [Suspect]
     Active Substance: ETANERCEPT
     Indication: Rheumatoid arthritis
     Dosage: UNK, WEEKLY
     Route: 065
  2. LEFLUNOMIDE [Concomitant]
     Active Substance: LEFLUNOMIDE
     Dosage: UNK
  3. SULFASALAZINE [Concomitant]
     Active Substance: SULFASALAZINE
     Dosage: UNK
  4. GABAPENTIN [Concomitant]
     Active Substance: GABAPENTIN
     Dosage: UNK
  5. CALCIUM [Concomitant]
     Active Substance: CALCIUM
     Dosage: UNK
  6. FOLIC ACID [Concomitant]
     Active Substance: FOLIC ACID
     Dosage: UNK
  7. PREDNISONE [Concomitant]
     Active Substance: PREDNISONE
     Dosage: UNK

REACTIONS (15)
  - Haemorrhage [Not Recovered/Not Resolved]
  - Polyp [Not Recovered/Not Resolved]
  - Uterine leiomyoma [Unknown]
  - Uterine polyp [Unknown]
  - Vaginal haemorrhage [Unknown]
  - Pain [Unknown]
  - Diabetes mellitus [Unknown]
  - Gait disturbance [Unknown]
  - Haemoptysis [Unknown]
  - Spinal column injury [Unknown]
  - Endometrial thickening [Unknown]
  - Nerve compression [Unknown]
  - Inflammation [Unknown]
  - Amenorrhoea [Unknown]
  - Uterine disorder [Unknown]

NARRATIVE: CASE EVENT DATE: 20200801
